FAERS Safety Report 7117988-0 (Version None)
Quarter: 2010Q4

REPORT INFORMATION
  Report Type: 
  Country: None (occurrence: None)
  Receive Date: 20101123
  Receipt Date: 20101117
  Transmission Date: 20110411
  Serious: Yes (Death)
  Sender: FDA-Public Use
  Company Number: PHHY2010CA49553

PATIENT
  Sex: Male

DRUGS (2)
  1. CLOZARIL [Suspect]
     Indication: BIPOLAR DISORDER
     Dosage: 600 MG
     Dates: start: 20060504
  2. OLANZAPINE [Concomitant]
     Dosage: UNK

REACTIONS (1)
  - ARRHYTHMIA [None]
